FAERS Safety Report 8967158 (Version 1)
Quarter: 2012Q4

REPORT INFORMATION
  Report Type: 
  Country: HN (occurrence: HN)
  Receive Date: 20121217
  Receipt Date: 20121217
  Transmission Date: 20130627
  Serious: Yes (Other)
  Sender: FDA-Public Use
  Company Number: PHHY2012HN115444

PATIENT
  Sex: Female

DRUGS (1)
  1. GLIVEC [Suspect]
     Indication: CHRONIC MYELOID LEUKAEMIA
     Dosage: 400 mg, UNK

REACTIONS (2)
  - Respiratory arrest [Unknown]
  - Chronic myeloid leukaemia [Unknown]
